FAERS Safety Report 4317953-2 (Version None)
Quarter: 2004Q1

REPORT INFORMATION
  Report Type: 
  Country: None (occurrence: None)
  Receive Date: 20040316
  Receipt Date: 20040206
  Transmission Date: 20041129
  Serious: Yes (Hospitalization)
  Sender: FDA-Public Use
  Company Number: JP-GLAXOSMITHKLINE-B0323022A

PATIENT
  Age: 80 Year
  Sex: Male
  Weight: 51 kg

DRUGS (10)
  1. VALTREX [Suspect]
     Indication: HERPES ZOSTER
     Dosage: 1000MG PER DAY
     Route: 048
     Dates: start: 20040202, end: 20040204
  2. ZOVIRAX [Suspect]
     Indication: HERPES ZOSTER
     Dosage: 250MG PER DAY
     Route: 042
     Dates: start: 20040205, end: 20040205
  3. HEMODIALYSIS [Concomitant]
     Indication: RENAL FAILURE CHRONIC
     Dates: start: 19991101
  4. ISOSORBIDE DINITRATE [Concomitant]
     Indication: ANGINA PECTORIS
     Dosage: 40MG PER DAY
     Route: 048
     Dates: start: 20000414
  5. WARFARIN POTASSIUM [Concomitant]
     Dosage: 1.5MG PER DAY
     Route: 048
     Dates: start: 20000416
  6. MECOBALAMIN [Concomitant]
     Dosage: 1.5MG PER DAY
     Route: 048
     Dates: start: 20010918
  7. ALFACALCIDOL [Concomitant]
     Dosage: .5G PER DAY
     Route: 048
     Dates: start: 20000416
  8. PRECIPITATED CALCIUM CARBONATE [Concomitant]
     Dosage: 500MG PER DAY
     Route: 048
     Dates: start: 20000416
  9. CARVEDILOL [Concomitant]
     Indication: ANGINA PECTORIS
     Dosage: 10MG PER DAY
     Route: 048
     Dates: start: 20011217
  10. MOSAPRIDE CITRATE [Concomitant]
     Dosage: 10MG PER DAY
     Route: 048
     Dates: start: 20030126

REACTIONS (8)
  - ANOREXIA [None]
  - APHASIA [None]
  - CEREBRAL ATROPHY [None]
  - CEREBRAL INFARCTION [None]
  - DEPRESSED LEVEL OF CONSCIOUSNESS [None]
  - MUSCULAR WEAKNESS [None]
  - PARALYSIS [None]
  - VOMITING [None]
